FAERS Safety Report 6383890-5 (Version None)
Quarter: 2009Q3

REPORT INFORMATION
  Report Type: 
  Country: None (occurrence: None)
  Receive Date: 20090929
  Receipt Date: 20090929
  Transmission Date: 20100115
  Serious: Yes (Hospitalization, Other)
  Sender: FDA-Public Use
  Company Number: None

PATIENT
  Age: 24 Year
  Sex: Female
  Weight: 74.8435 kg

DRUGS (4)
  1. ALPRAZOLAM [Suspect]
  2. PAXIL [Suspect]
  3. ORTHO TRI-CYCLEN LO [Concomitant]
  4. SUDAFED SEVERE SINUS TABLET -OTC- [Concomitant]

REACTIONS (4)
  - DRUG TOLERANCE [None]
  - DRUG WITHDRAWAL SYNDROME [None]
  - GRAND MAL CONVULSION [None]
  - INJURY [None]
